FAERS Safety Report 23983058 (Version 3)
Quarter: 2025Q3

REPORT INFORMATION
  Report Type: Spontaneous
  Country: EU (occurrence: EU)
  Receive Date: 20240617
  Receipt Date: 20250810
  Transmission Date: 20251021
  Serious: Yes (Death, Other)
  Sender: ALEXION PHARMACEUTICALS
  Company Number: None

PATIENT
  Age: 5 Day
  Sex: Male
  Weight: 0.96 kg

DRUGS (10)
  1. SOLIRIS [Suspect]
     Active Substance: ECULIZUMAB
     Indication: Thrombotic microangiopathy
     Route: 065
  2. SOLIRIS [Suspect]
     Active Substance: ECULIZUMAB
     Route: 065
  3. SOLIRIS [Suspect]
     Active Substance: ECULIZUMAB
     Route: 065
  4. SOLIRIS [Suspect]
     Active Substance: ECULIZUMAB
     Route: 065
  5. SOLIRIS [Suspect]
     Active Substance: ECULIZUMAB
     Route: 065
  6. ATENOLOL [Concomitant]
     Active Substance: ATENOLOL
     Route: 065
  7. URAPIDIL [Concomitant]
     Active Substance: URAPIDIL
     Route: 065
  8. ESIDREX [Concomitant]
     Active Substance: HYDROCHLOROTHIAZIDE
     Route: 065
  9. COVERAM [Concomitant]
     Active Substance: AMLODIPINE\PERINDOPRIL
     Route: 065
  10. EMPAGLIFLOZIN [Concomitant]
     Active Substance: EMPAGLIFLOZIN
     Route: 065

REACTIONS (4)
  - Foetal exposure during pregnancy [Fatal]
  - Pulmonary haemorrhage [Fatal]
  - Bone marrow failure [Fatal]
  - Septic shock [Fatal]

NARRATIVE: CASE EVENT DATE: 20240602
